FAERS Safety Report 18472837 (Version 3)
Quarter: 2021Q4

REPORT INFORMATION
  Report Type: Spontaneous
  Country: DE (occurrence: DE)
  Receive Date: 20201106
  Receipt Date: 20211125
  Transmission Date: 20220303
  Serious: Yes (Other)
  Sender: FDA-Public Use
  Company Number: DE-002147023-NVSC2020DE280061

PATIENT
  Sex: Female

DRUGS (7)
  1. LETROZOLE [Suspect]
     Active Substance: LETROZOLE
     Indication: Breast cancer metastatic
     Dosage: 2.5 MILLIGRAM, ONCE A DAY
     Route: 048
     Dates: start: 20190201
  2. KISQALI [Suspect]
     Active Substance: RIBOCICLIB
     Indication: Breast cancer metastatic
     Dosage: 600 MILLIGRAM, ONCE A DAY (SCHEMA 21 DAYS INTAKE, 7 DAYS PAUSE)
     Route: 048
     Dates: start: 20190201, end: 20190424
  3. KISQALI [Suspect]
     Active Substance: RIBOCICLIB
     Dosage: 400 MILLIGRAM, ONCE A DAY (SCHEMA 21 DAYS INTAKE, 7 DAYS PAUSE)
     Route: 048
     Dates: start: 20190430
  4. LERCANIDIPINE [Concomitant]
     Active Substance: LERCANIDIPINE
     Indication: Hypertension
     Dosage: UNK
     Route: 048
     Dates: start: 202001, end: 20200205
  5. LERCANIDIPINE [Concomitant]
     Active Substance: LERCANIDIPINE
     Dosage: UNK
     Route: 065
     Dates: start: 20200205, end: 20200205
  6. SODIUM PERCHLORATE [Concomitant]
     Active Substance: SODIUM PERCHLORATE
     Indication: Prophylaxis
     Dosage: 1200 MILLIGRAM, 1200 MG (1200 MG FOR 2 WEEKS BEFORE AND AFTER CONTRAST EXAMINATIONS)
     Route: 048
     Dates: start: 20210112
  7. CARBIMAZOLE [Concomitant]
     Active Substance: CARBIMAZOLE
     Indication: Prophylaxis
     Dosage: 10 MILLIGRAM, ONCE A DAY
     Route: 048
     Dates: start: 20210601

REACTIONS (10)
  - Osteosclerosis [Recovering/Resolving]
  - Spinal pain [Recovering/Resolving]
  - Injury [Recovering/Resolving]
  - Fall [Recovering/Resolving]
  - Spinal osteoarthritis [Unknown]
  - Pelvic pain [Recovering/Resolving]
  - Osteoarthritis [Not Recovered/Not Resolved]
  - Goitre [Not Recovered/Not Resolved]
  - Carpal tunnel syndrome [Not Recovered/Not Resolved]
  - Contraindicated product prescribed [Recovered/Resolved]

NARRATIVE: CASE EVENT DATE: 20190626
